FAERS Safety Report 11243319 (Version 3)
Quarter: 2015Q4

REPORT INFORMATION
  Report Type: Spontaneous
  Country: US (occurrence: US)
  Receive Date: 20150707
  Receipt Date: 20151110
  Transmission Date: 20160304
  Serious: Yes (Death, Hospitalization, Other)
  Sender: FDA-Public Use
  Company Number: US-PFIZER INC-2015223040

PATIENT
  Age: 60 Year
  Sex: Female

DRUGS (24)
  1. NORVASC [Concomitant]
     Active Substance: AMLODIPINE BESYLATE
     Dosage: 5 MG, DAILY
     Route: 048
  2. VITAMIN C [Concomitant]
     Active Substance: ASCORBIC ACID
     Dosage: 1000 MG, DAILY
     Route: 048
  3. OMNARIS [Concomitant]
     Active Substance: CICLESONIDE
     Dosage: 50 ?G, UNK
  4. ONDANSETRON [Concomitant]
     Active Substance: ONDANSETRON
     Dosage: 4 MG, UNK
  5. KENALOG [Concomitant]
     Active Substance: TRIAMCINOLONE ACETONIDE
     Dosage: (APPLY TOPICALLY TO AFFECTED AREA AS DIRECTED)
     Route: 061
  6. DURAGESIC [Concomitant]
     Active Substance: FENTANYL
     Dosage: 50 MG, (APPLY 1 PATCH TOPICALLY EVERY 72 HOURS)
     Route: 061
  7. LACTULOSE. [Concomitant]
     Active Substance: LACTULOSE
     Dosage: 30 ML, 3X/DAY (10GM/ 15 ML)
     Route: 048
  8. DELTASONE [Concomitant]
     Active Substance: PREDNISONE
     Dosage: 50 MG, DAILY
     Route: 048
  9. RAPAMUNE [Suspect]
     Active Substance: SIROLIMUS
     Indication: LIVER TRANSPLANT
     Dosage: 20 MG, 2X/DAY
  10. VITAMIN D [Concomitant]
     Active Substance: CHOLECALCIFEROL
     Dosage: 1000 IU, DAILY
     Route: 048
  11. LOTRISONE [Concomitant]
     Active Substance: BETAMETHASONE DIPROPIONATE\CLOTRIMAZOLE
     Dosage: 2X/DAY (CLOTRIMAZOLE 1% BETAMETHASONE 0.05%)
     Route: 061
  12. LASIX [Concomitant]
     Active Substance: FUROSEMIDE
     Dosage: 20 MG, DAILY
     Route: 048
  13. GLUCOSAMINE CHONDROITIN COMPLEX [Concomitant]
     Active Substance: CHONDROITIN SULFATE (BOVINE)\GLUCOSAMINE HYDROCHLORIDE
     Dosage: 1 DF, DAILY
     Route: 048
  14. OMEGA-3 FATTY ACIDS [Concomitant]
     Active Substance: OMEGA-3 FATTY ACIDS
     Dosage: 1000 MG, 2X/DAY
     Route: 048
  15. VITAMIN B COMPLEX [Concomitant]
     Active Substance: CYANOCOBALAMIN\DEXPANTHENOL\NIACINAMIDE\PYRIDOXINE HYDROCHLORIDE\RIBOFLAVIN 5^-PHOSPHATE SODIUM\THIAMINE HYDROCHLORIDE\VITAMIN B COMPLEX
     Dosage: 1 DF, DAILY
     Route: 048
  16. RAPAMUNE [Suspect]
     Active Substance: SIROLIMUS
     Dosage: 1 MG, 1X/DAY
     Route: 048
  17. BIOTIN [Concomitant]
     Active Substance: BIOTIN
     Dosage: 1 MG, DAILY
     Route: 048
  18. ALDACTONE [Concomitant]
     Active Substance: SPIRONOLACTONE
     Dosage: 50 MG, DAILY
     Route: 048
  19. PROAIR HFA [Concomitant]
     Active Substance: ALBUTEROL SULFATE
     Dosage: (108 (90 BASE) MCG/ACT INHALER)
  20. VITAMIN A [Concomitant]
     Active Substance: VITAMIN A
     Dosage: 8000 IU, DAILY
     Route: 048
  21. CALCIUM + MAGNESIUM + ZINK [Concomitant]
     Dosage: 1 DF, DAILY
     Route: 048
  22. XYLOCAINE [Concomitant]
     Active Substance: LIDOCAINE HYDROCHLORIDE
     Indication: PAIN
     Dosage: APPLY A SMALL AMOUNT TO AFFECTED AREA THREE TIMES DAILY AS NEEDED)
     Route: 061
  23. ROXICODONE [Concomitant]
     Active Substance: OXYCODONE HYDROCHLORIDE
     Indication: PAIN
     Dosage: 20 MG, (TAKE 2 TABLETS BY MOUTH EVERY 3 HOURS AS NEEDED)
     Route: 048
  24. VITAMIN E [Concomitant]
     Active Substance: .ALPHA.-TOCOPHEROL
     Dosage: 400 IU, DAILY
     Route: 048

REACTIONS (3)
  - Neoplasm malignant [Not Recovered/Not Resolved]
  - Neoplasm recurrence [Unknown]
  - Death [Fatal]

NARRATIVE: CASE EVENT DATE: 2000
